FAERS Safety Report 10243363 (Version 2)
Quarter: 2014Q3

REPORT INFORMATION
  Report Type: Spontaneous
  Country: US (occurrence: US)
  Receive Date: 20140618
  Receipt Date: 20140821
  Transmission Date: 20150326
  Serious: No
  Sender: FDA-Public Use
  Company Number: US-009507513-1406USA006925

PATIENT
  Age: 22 Year
  Sex: Female

DRUGS (1)
  1. NEXPLANON [Suspect]
     Active Substance: ETONOGESTREL
     Indication: CONTRACEPTION
     Dosage: DOSE/FREQUENCY: SINGLE ROD/LEF ARM
     Route: 059
     Dates: start: 20140130

REACTIONS (2)
  - Medical device complication [Recovered/Resolved]
  - Suture insertion [Recovered/Resolved]

NARRATIVE: CASE EVENT DATE: 201405
